FAERS Safety Report 6431034-3 (Version None)
Quarter: 2009Q4

REPORT INFORMATION
  Report Type: 
  Country: None (occurrence: None)
  Receive Date: 20091106
  Receipt Date: 20091030
  Transmission Date: 20100525
  Serious: Yes (Hospitalization)
  Sender: FDA-Public Use
  Company Number: US-SANOFI-SYNTHELABO-D01200901010

PATIENT
  Sex: Male
  Weight: 112 kg

DRUGS (5)
  1. CLOPIDOGREL [Suspect]
     Indication: ACUTE CORONARY SYNDROME
     Dosage: 300 MG (+PLACEBO) D1 FOLLOWED BY 75 MG (+PLACEBO) D2 TO D7; 75 MG FROM D8 TO 30
     Route: 048
  2. ASA LOW DOSE [Concomitant]
     Indication: ACUTE CORONARY SYNDROME
     Dosage: AT LEAST 300 MG D1; 75-100 MG FROM D2 TO D30
     Route: 048
     Dates: start: 20090202
  3. CLOPIDOGREL [Suspect]
     Indication: ACUTE CORONARY SYNDROME
     Dosage: 600 MG LD D1 FOLLOWED BY 150 MG FROM D2 TO D7; 75 MG FROM D8 TO 30
     Route: 048
     Dates: start: 20090202
  4. EPTIFIBATIDE [Concomitant]
     Indication: PERCUTANEOUS CORONARY INTERVENTION
     Dosage: BOLUS 20.4 MG
     Route: 065
     Dates: start: 20090202, end: 20090202
  5. EPTIFIBATIDE [Concomitant]
     Dosage: DOSAGE:75 MG IN 100ML) FOR A TOTAL OF 18 HOURS 18 ML/HOUR
     Route: 065
     Dates: start: 20090202, end: 20090203

REACTIONS (1)
  - VASCULAR PSEUDOANEURYSM [None]
